FAERS Safety Report 9706257 (Version 2)
Quarter: 2014Q1

REPORT INFORMATION
  Report Type: Spontaneous
  Country: US (occurrence: US)
  Receive Date: 20131125
  Receipt Date: 20140107
  Transmission Date: 20141002
  Serious: Yes (Other)
  Sender: FDA-Public Use
  Company Number: US-AMGEN-USASP2013081653

PATIENT
  Age: 78 Year
  Sex: Male

DRUGS (1)
  1. ARANESP [Suspect]
     Indication: MYELODYSPLASTIC SYNDROME
     Route: 065

REACTIONS (7)
  - Anxiety [Unknown]
  - Mobility decreased [Unknown]
  - Insomnia [Unknown]
  - Feeling abnormal [Unknown]
  - Hot flush [Unknown]
  - Hyperhidrosis [Unknown]
  - Nausea [Unknown]
